FAERS Safety Report 11062872 (Version 1)
Quarter: 2015Q2

REPORT INFORMATION
  Report Type: Spontaneous
  Country: JP (occurrence: JP)
  Receive Date: 20150424
  Receipt Date: 20150424
  Transmission Date: 20150821
  Serious: Yes (Life-Threatening, Hospitalization)
  Sender: FDA-Public Use
  Company Number: JP-BAYER-2014-156583

PATIENT
  Age: 73 Year
  Sex: Male
  Weight: 70 kg

DRUGS (13)
  1. XARELTO [Suspect]
     Active Substance: RIVAROXABAN
     Indication: ATRIAL FIBRILLATION
     Dosage: 10 MG, QD
     Route: 048
     Dates: start: 20140228
  2. XARELTO [Suspect]
     Active Substance: RIVAROXABAN
     Indication: CEREBROVASCULAR ACCIDENT PROPHYLAXIS
  3. ARTIST [Concomitant]
     Active Substance: CARVEDILOL
     Indication: CARDIAC FAILURE
     Dosage: DAILY DOSE 5 MG
     Route: 048
     Dates: start: 20130208
  4. MICARDIS [Concomitant]
     Active Substance: TELMISARTAN
     Indication: HYPERTENSION
     Dosage: DAILY DOSE 20 MG
     Route: 048
     Dates: start: 20130208, end: 20140527
  5. XARELTO [Suspect]
     Active Substance: RIVAROXABAN
     Indication: ATRIAL FLUTTER
  6. ALDACTONE [Concomitant]
     Active Substance: SPIRONOLACTONE
     Indication: CARDIAC FAILURE
     Dosage: DAILY DOSE 50 MG
     Route: 048
     Dates: start: 20140228, end: 20140527
  7. LIPITOR [Concomitant]
     Active Substance: ATORVASTATIN CALCIUM
     Indication: HYPERCHOLESTEROLAEMIA
     Dosage: DAILY DOSE 10 MG
     Route: 048
     Dates: start: 20130208
  8. BAYASPIRIN [Suspect]
     Active Substance: ASPIRIN
     Indication: MYOCARDIAL ISCHAEMIA
     Dosage: DAILY DOSE 100 MG
     Route: 048
     Dates: start: 20130208
  9. TAKEPRON [Concomitant]
     Active Substance: LANSOPRAZOLE
     Indication: GASTRITIS
     Dosage: DAILY DOSE 15 MG
     Route: 048
     Dates: start: 20130208
  10. LASIX [Concomitant]
     Active Substance: FUROSEMIDE
     Indication: CARDIAC FAILURE
     Dosage: DAILY DOSE 20 MG
     Route: 048
     Dates: start: 20140228
  11. TAMBOCOR [Concomitant]
     Active Substance: FLECAINIDE ACETATE
     Indication: ARRHYTHMIA
     Dosage: DAILY DOSE 150 MG
     Route: 048
     Dates: start: 20140221
  12. BROTIZOLAM [Concomitant]
     Active Substance: BROTIZOLAM
     Dosage: DAILY DOSE .25 MG
     Route: 048
  13. KETOPROFEN. [Concomitant]
     Active Substance: KETOPROFEN
     Route: 062

REACTIONS (2)
  - Cardiac tamponade [Recovered/Resolved]
  - Pericardial haemorrhage [Recovered/Resolved]

NARRATIVE: CASE EVENT DATE: 20140526
